FAERS Safety Report 20506132 (Version 1)
Quarter: 2022Q1

REPORT INFORMATION
  Report Type: Spontaneous
  Country: US (occurrence: US)
  Receive Date: 20220223
  Receipt Date: 20220223
  Transmission Date: 20220423
  Serious: No
  Sender: FDA-Public Use
  Company Number: US-PHARMAESSENTIA CORPORATION-US-2021-PEC-000460

PATIENT

DRUGS (1)
  1. ROPEGINTERFERON ALFA-2B [Suspect]
     Active Substance: ROPEGINTERFERON ALFA-2B
     Indication: Polycythaemia vera
     Dosage: 100 MICROGRAM, Q2W
     Route: 065
     Dates: start: 20211227

REACTIONS (1)
  - Injection site pain [Recovered/Resolved]

NARRATIVE: CASE EVENT DATE: 20211227
